FAERS Safety Report 12717395 (Version 1)
Quarter: 2016Q3

REPORT INFORMATION
  Report Type: Spontaneous
  Country: US (occurrence: US)
  Receive Date: 20160906
  Receipt Date: 20160906
  Transmission Date: 20161109
  Serious: Yes (Other)
  Sender: FDA-Public Use
  Company Number: None

PATIENT
  Age: 43 Year
  Sex: Female
  Weight: 53.1 kg

DRUGS (3)
  1. LEVOFLOXACIN. [Suspect]
     Active Substance: LEVOFLOXACIN
     Indication: INFECTION
     Route: 048
     Dates: start: 20160721, end: 20160722
  2. ABVD CHEMOTHERAPY [Concomitant]
  3. MULTIVITAMIN-MINERAL [Concomitant]

REACTIONS (5)
  - Fatigue [None]
  - Heart rate increased [None]
  - Paraesthesia [None]
  - Neuropathy peripheral [None]
  - Anxiety [None]

NARRATIVE: CASE EVENT DATE: 20160722
